FAERS Safety Report 15722479 (Version 1)
Quarter: 2018Q4

REPORT INFORMATION
  Report Type: Spontaneous
  Country: US (occurrence: US)
  Receive Date: 20181213
  Receipt Date: 20181213
  Transmission Date: 20190205
  Serious: Yes (Disabling)
  Sender: FDA-Public Use
  Company Number: None

PATIENT
  Age: 40 Year
  Sex: Male
  Weight: 81 kg

DRUGS (1)
  1. MEFLOQUINE [Suspect]
     Active Substance: MEFLOQUINE
     Indication: MALARIA PROPHYLAXIS
     Route: 048
     Dates: start: 19900101, end: 19940101

REACTIONS (3)
  - Attention deficit/hyperactivity disorder [None]
  - Post-traumatic stress disorder [None]
  - Major depression [None]

NARRATIVE: CASE EVENT DATE: 20011101
